FAERS Safety Report 5316608-5 (Version None)
Quarter: 2007Q2

REPORT INFORMATION
  Report Type: 
  Country: None (occurrence: None)
  Receive Date: 20070504
  Receipt Date: 20070424
  Transmission Date: 20071010
  Serious: Yes (Hospitalization)
  Sender: FDA-Public Use
  Company Number: FRWYE968412SEP05

PATIENT
  Sex: Male
  Weight: 71 kg

DRUGS (5)
  1. ENBREL [Suspect]
     Indication: ANKYLOSING SPONDYLITIS
     Route: 058
     Dates: start: 20030101, end: 20050613
  2. ENBREL [Suspect]
     Route: 058
     Dates: start: 20051026
  3. SALAZOPYRINE ENTERIC-COATED [Concomitant]
     Indication: ANKYLOSING SPONDYLITIS
     Dosage: UNKNOWN
     Route: 048
  4. BUTAZOLIDIN [Concomitant]
     Dosage: UNKNOWN
     Dates: end: 20050613
  5. BUTAZOLIDIN [Concomitant]
     Dosage: UNKNOWN
     Dates: start: 20050101

REACTIONS (3)
  - ANKYLOSING SPONDYLITIS [None]
  - CAT SCRATCH DISEASE [None]
  - SKIN INJURY [None]
